FAERS Safety Report 18481940 (Version 1)
Quarter: 2020Q4

REPORT INFORMATION
  Report Type: Spontaneous
  Country: US (occurrence: US)
  Receive Date: 20201109
  Receipt Date: 20201109
  Transmission Date: 20210114
  Serious: No
  Sender: FDA-Public Use
  Company Number: US-SA-2020SA312542

PATIENT

DRUGS (2)
  1. DUPIXENT [Suspect]
     Active Substance: DUPILUMAB
     Dosage: 300 MG, QOW (DAY 15)
     Route: 058
     Dates: start: 2020
  2. DUPIXENT [Suspect]
     Active Substance: DUPILUMAB
     Indication: PRODUCT USED FOR UNKNOWN INDICATION
     Dosage: 600 MG, 1X (DAY 1)
     Route: 058
     Dates: start: 202010, end: 202010

REACTIONS (3)
  - Injection site mass [Unknown]
  - Injection site rash [Unknown]
  - Injection site irritation [Unknown]

NARRATIVE: CASE EVENT DATE: 2020
